FAERS Safety Report 25644698 (Version 1)
Quarter: 2025Q3

REPORT INFORMATION
  Report Type: Spontaneous
  Country: US (occurrence: US)
  Receive Date: 20250805
  Receipt Date: 20250805
  Transmission Date: 20251021
  Serious: Yes (Other)
  Sender: ELI LILLY AND COMPANY
  Company Number: US-ELI_LILLY_AND_COMPANY-US202507025253

PATIENT
  Age: 58 Year

DRUGS (2)
  1. MOUNJARO [Suspect]
     Active Substance: TIRZEPATIDE
     Indication: Product used for unknown indication
     Route: 065
     Dates: start: 20240301, end: 20250110
  2. OZEMPIC [Suspect]
     Active Substance: SEMAGLUTIDE
     Indication: Product used for unknown indication
     Route: 065
     Dates: start: 20230816, end: 20230928

REACTIONS (6)
  - Ileus [Unknown]
  - Intestinal obstruction [Unknown]
  - Abdominal pain [Unknown]
  - Constipation [Unknown]
  - Abdominal distension [Unknown]
  - Vomiting [Unknown]
